FAERS Safety Report 6815368-6 (Version None)
Quarter: 2010Q3

REPORT INFORMATION
  Report Type: 
  Country: None (occurrence: None)
  Receive Date: 20100701
  Receipt Date: 20100701
  Transmission Date: 20110219
  Serious: Yes (Hospitalization)
  Sender: FDA-Public Use
  Company Number: None

PATIENT
  Sex: Female

DRUGS (1)
  1. LENALIDOMIDE [Suspect]
     Indication: HODGKIN'S DISEASE
     Dosage: 2.5 MG ONCE DAILY PO
     Route: 048
     Dates: start: 20100122, end: 20100611

REACTIONS (8)
  - BACILLUS INFECTION [None]
  - BLOOD CULTURE POSITIVE [None]
  - CULTURE URINE POSITIVE [None]
  - DEVICE RELATED INFECTION [None]
  - FATIGUE [None]
  - INFECTION [None]
  - MYALGIA [None]
  - VOMITING [None]
